FAERS Safety Report 16926615 (Version 1)
Quarter: 2019Q4

REPORT INFORMATION
  Report Type: Spontaneous
  Country: US (occurrence: US)
  Receive Date: 20191016
  Receipt Date: 20191016
  Transmission Date: 20200122
  Serious: No
  Sender: FDA-Public Use
  Company Number: US-SA-2019SA284724

PATIENT
  Sex: Male

DRUGS (1)
  1. DUPIXENT [Suspect]
     Active Substance: DUPILUMAB
     Indication: NASAL POLYPS
     Dosage: 300 MG, QOW, SOLUTION FOR INJECTION
     Route: 058
     Dates: start: 201909

REACTIONS (3)
  - Sinus operation [Recovering/Resolving]
  - Sinus disorder [Recovering/Resolving]
  - Headache [Recovering/Resolving]
